FAERS Safety Report 18801874 (Version 2)
Quarter: 2021Q2

REPORT INFORMATION
  Report Type: Spontaneous
  Country: US (occurrence: US)
  Receive Date: 20210128
  Receipt Date: 20210607
  Transmission Date: 20210717
  Serious: Yes (Other)
  Sender: FDA-Public Use
  Company Number: US-BAUSCH-BL-2021-002379

PATIENT
  Age: 76 Year
  Sex: Female
  Weight: 58.57 kg

DRUGS (9)
  1. AZOPT [Concomitant]
     Active Substance: BRINZOLAMIDE
     Indication: GLAUCOMA
     Dosage: 1 DROP IN EACH EYE 2 TIMES A DAY.
     Route: 047
  2. LUMIGAN [Concomitant]
     Active Substance: BIMATOPROST
     Indication: GLAUCOMA
     Dosage: 1 DROP IN THE RIGHT EYE ONCE DAILY.
     Route: 047
  3. METOPROLOL. [Concomitant]
     Active Substance: METOPROLOL
     Indication: PRODUCT USED FOR UNKNOWN INDICATION
  4. VYZULTA [Suspect]
     Active Substance: LATANOPROSTENE BUNOD
     Route: 047
     Dates: start: 20210327, end: 202105
  5. VYZULTA [Suspect]
     Active Substance: LATANOPROSTENE BUNOD
     Dosage: IT WAS UNCLEAR IF THE PATIENT MEANT 25/APR/2021 OR 25/MAY/2021
     Route: 047
     Dates: start: 202105
  6. PLAVIX [Concomitant]
     Active Substance: CLOPIDOGREL BISULFATE
     Indication: PRODUCT USED FOR UNKNOWN INDICATION
  7. LOSARTAN. [Concomitant]
     Active Substance: LOSARTAN
     Indication: PRODUCT USED FOR UNKNOWN INDICATION
  8. VYZULTA [Suspect]
     Active Substance: LATANOPROSTENE BUNOD
     Indication: GLAUCOMA
     Dosage: IN LEFT EYE AT NIGHT?APPROXIMATELY ^8 WEEKS BEFORE 18/JAN/2021.
     Route: 047
     Dates: start: 202011
  9. FOLIC ACID. [Concomitant]
     Active Substance: FOLIC ACID
     Indication: PRODUCT USED FOR UNKNOWN INDICATION

REACTIONS (5)
  - Eye haemorrhage [Not Recovered/Not Resolved]
  - Product quality issue [Unknown]
  - Product storage error [Unknown]
  - Swelling of eyelid [Not Recovered/Not Resolved]
  - Product use issue [Unknown]

NARRATIVE: CASE EVENT DATE: 2021
